FAERS Safety Report 7770691-6 (Version None)
Quarter: 2011Q3

REPORT INFORMATION
  Report Type: 
  Country: None (occurrence: None)
  Receive Date: 20110922
  Receipt Date: 20110622
  Transmission Date: 20111222
  Serious: No
  Sender: FDA-Public Use
  Company Number: US-ASTRAZENECA-2011SE38324

PATIENT
  Age: 35 Year
  Sex: Female
  Weight: 63.5 kg

DRUGS (5)
  1. TRAZODONE HYDROCHLORIDE [Concomitant]
  2. SEROQUEL XR [Suspect]
     Route: 048
     Dates: start: 20100101, end: 20110501
  3. XANAX [Concomitant]
  4. CELEXA [Concomitant]
  5. CYMBALTA [Concomitant]

REACTIONS (4)
  - DIZZINESS [None]
  - DRUG DOSE OMISSION [None]
  - TREMOR [None]
  - NAUSEA [None]
